FAERS Safety Report 4267078-X (Version None)
Quarter: 2004Q1

REPORT INFORMATION
  Report Type: 
  Country: None (occurrence: None)
  Receive Date: 20040108
  Receipt Date: 20040102
  Transmission Date: 20041129
  Serious: Yes (Death)
  Sender: FDA-Public Use
  Company Number: PHEH2004US00479

PATIENT
  Sex: Male

DRUGS (6)
  1. CLOZARIL [Suspect]
     Dosage: 1100 MG, QD
     Route: 048
  2. CLOZARIL [Suspect]
     Dosage: 900 MG, QD
     Route: 048
  3. OLANZAPINE [Concomitant]
  4. VALPROIC ACID [Concomitant]
  5. AMANTADINE HCL [Concomitant]
  6. ANTICHOLINERGICS [Concomitant]

REACTIONS (2)
  - ASPIRATION [None]
  - MEDICATION ERROR [None]
